FAERS Safety Report 8596986-4 (Version None)
Quarter: 2012Q3

REPORT INFORMATION
  Report Type: 
  Country: None (occurrence: None)
  Receive Date: 20120815
  Receipt Date: 20110926
  Transmission Date: 20120928
  Serious: Yes (Death, Hospitalization, Other)
  Sender: FDA-Public Use
  Company Number: PHEH2011US03296

PATIENT
  Sex: Male

DRUGS (2)
  1. EXJADE [Suspect]
     Dosage: 1375 MG, QD
     Route: 048
  2. VIDAZA [Concomitant]

REACTIONS (6)
  - MALAISE [None]
  - DIARRHOEA [None]
  - THROMBOCYTOPENIA [None]
  - PNEUMONIA [None]
  - NEUTROPENIA [None]
  - MYELODYSPLASTIC SYNDROME [None]
